FAERS Safety Report 24073198 (Version 1)
Quarter: 2024Q3

REPORT INFORMATION
  Report Type: Spontaneous
  Country: US (occurrence: US)
  Receive Date: 20240710
  Receipt Date: 20240710
  Transmission Date: 20241017
  Serious: No
  Sender: GLAXOSMITHKLINE
  Company Number: US-GSK-US2024083900

PATIENT
  Age: 75 Year
  Sex: Female

DRUGS (1)
  1. TRELEGY ELLIPTA [Suspect]
     Active Substance: FLUTICASONE FUROATE\UMECLIDINIUM BROMIDE\VILANTEROL TRIFENATATE
     Indication: Wheezing
     Dosage: UNK
     Dates: start: 20240418, end: 20240516

REACTIONS (4)
  - Plicated tongue [Not Recovered/Not Resolved]
  - Oral candidiasis [Unknown]
  - Tongue erythema [Unknown]
  - Glossodynia [Unknown]
